FAERS Safety Report 9153471 (Version 1)
Quarter: 2013Q1

REPORT INFORMATION
  Report Type: Spontaneous
  Country: IT (occurrence: None)
  Receive Date: 20130204
  Receipt Date: 20130204
  Transmission Date: 20140127
  Serious: Yes (Hospitalization, Disabling)
  Sender: FDA-Public Use
  Company Number: 1586483

PATIENT
  Age: 55 Year
  Sex: Female

DRUGS (4)
  1. OXALIPLATIN [Suspect]
     Indication: RECTAL ADENOCARCINOMA
     Route: 042
  2. OXALIPLATIN [Suspect]
     Indication: METASTASES TO LIVER
     Route: 042
  3. CAPECITABINE [Suspect]
     Indication: RECTAL ADENOCARCINOMA
     Route: 042
  4. CAPECITABINE [Suspect]
     Indication: METASTASES TO LIVER
     Route: 042

REACTIONS (11)
  - Cardiotoxicity [None]
  - Neuromuscular toxicity [None]
  - Paraplegia [None]
  - Asthenia [None]
  - Fatigue [None]
  - Decreased appetite [None]
  - Hypoaesthesia [None]
  - Peripheral sensorimotor neuropathy [None]
  - Myopathy [None]
  - Left ventricular failure [None]
  - Drug interaction [None]
